FAERS Safety Report 11398985 (Version 1)
Quarter: 2015Q3

REPORT INFORMATION
  Report Type: Spontaneous
  Country: US (occurrence: None)
  Receive Date: 20150819
  Receipt Date: 20150819
  Transmission Date: 20151125
  Serious: No
  Sender: FDA-Public Use
  Company Number: None

PATIENT
  Age: 66 Year
  Sex: Female
  Weight: 56.7 kg

DRUGS (1)
  1. ZETIA [Suspect]
     Active Substance: EZETIMIBE
     Indication: BLOOD CHOLESTEROL INCREASED
     Route: 048
     Dates: start: 20150506, end: 20150810

REACTIONS (6)
  - Hypoaesthesia [None]
  - Pain in extremity [None]
  - Arthralgia [None]
  - Back pain [None]
  - Musculoskeletal pain [None]
  - Middle insomnia [None]

NARRATIVE: CASE EVENT DATE: 20150806
